FAERS Safety Report 4586577-4 (Version None)
Quarter: 2005Q1

REPORT INFORMATION
  Report Type: 
  Country: None (occurrence: None)
  Receive Date: 20050218
  Receipt Date: 20040427
  Transmission Date: 20050727
  Serious: No
  Sender: FDA-Public Use
  Company Number: US-BRISTOL-MYERS SQUIBB COMPANY-12573747

PATIENT
  Age: 51 Year
  Sex: Female

DRUGS (2)
  1. CARBOPLATIN [Suspect]
     Indication: BREAST CANCER
     Dosage: CYCLE 3, DAY 1/ LOT #3L73149, EXP MAY-05, (2) 150 MG; 3I66673, EXP APR-05 (1) 50 MG
     Route: 042
     Dates: start: 20040414, end: 20040414
  2. TAXOL [Suspect]
     Indication: BREAST CANCER
     Route: 042
     Dates: start: 20040414, end: 20040414

REACTIONS (1)
  - PRURITUS [None]
